FAERS Safety Report 7432796-9 (Version None)
Quarter: 2011Q2

REPORT INFORMATION
  Report Type: 
  Country: None (occurrence: None)
  Receive Date: 20110422
  Receipt Date: 20110417
  Transmission Date: 20111010
  Serious: Yes (Hospitalization)
  Sender: FDA-Public Use
  Company Number: CN-ROCHE-771937

PATIENT
  Age: 50 Year
  Sex: Female

DRUGS (4)
  1. IRINOTECAN HCL [Concomitant]
  2. AVASTIN [Suspect]
     Route: 065
  3. CALCIUM FOLINATE [Concomitant]
  4. FLUOROURACIL [Concomitant]

REACTIONS (4)
  - MUSCLE SPASMS [None]
  - CONVULSION [None]
  - COMA [None]
  - THROMBOSIS [None]
